APPROVED DRUG PRODUCT: GLYCOLAX
Active Ingredient: POLYETHYLENE GLYCOL 3350
Strength: 17GM/PACKET
Dosage Form/Route: FOR SOLUTION;ORAL
Application: A090600 | Product #001
Applicant: LANNETT CO INC
Approved: Oct 6, 2009 | RLD: No | RS: No | Type: DISCN